FAERS Safety Report 16667092 (Version 1)
Quarter: 2019Q3

REPORT INFORMATION
  Report Type: Report from Study
  Country: None (occurrence: CL)
  Receive Date: 20190805
  Receipt Date: 20190805
  Transmission Date: 20191004
  Serious: Yes (Other)
  Sender: FDA-Public Use
  Company Number: CL-ABBVIE-19K-034-2876480-00

PATIENT
  Sex: Male
  Weight: 41 kg

DRUGS (4)
  1. HUMIRA [Suspect]
     Active Substance: ADALIMUMAB
     Indication: JUVENILE IDIOPATHIC ARTHRITIS
     Route: 058
     Dates: start: 20141001
  2. SULFASALAZINE. [Concomitant]
     Active Substance: SULFASALAZINE
     Indication: PRODUCT USED FOR UNKNOWN INDICATION
  3. SPIRON [Concomitant]
     Indication: AUTISM SPECTRUM DISORDER
  4. ARADIX [Concomitant]
     Indication: AUTISM SPECTRUM DISORDER

REACTIONS (1)
  - Ocular hypertension [Recovering/Resolving]

NARRATIVE: CASE EVENT DATE: 2018
